FAERS Safety Report 5873894-0 (Version None)
Quarter: 2008Q3

REPORT INFORMATION
  Report Type: 
  Country: None (occurrence: None)
  Receive Date: 20080908
  Receipt Date: 20080902
  Transmission Date: 20090109
  Serious: Yes (Death)
  Sender: FDA-Public Use
  Company Number: US-CELGENEUS-163-20785-08080068

PATIENT
  Sex: Female

DRUGS (1)
  1. THALOMID [Suspect]
     Indication: NEPHROBLASTOMA
     Route: 048
     Dates: start: 20080310, end: 20080701

REACTIONS (1)
  - NEOPLASM PROGRESSION [None]
